FAERS Safety Report 5113989-2 (Version None)
Quarter: 2006Q3

REPORT INFORMATION
  Report Type: 
  Country: None (occurrence: None)
  Receive Date: 20060921
  Receipt Date: 20060914
  Transmission Date: 20061208
  Serious: Yes (Other)
  Sender: FDA-Public Use
  Company Number: 2006-02374

PATIENT
  Age: 71 Year
  Sex: Female
  Weight: 64.5 kg

DRUGS (2)
  1. VELCADE [Suspect]
     Indication: NON-SMALL CELL LUNG CANCER
     Dosage: 1.60 MG/M2, IV BOLUS
     Route: 040
     Dates: start: 20060830, end: 20060830
  2. TAXOTERE [Suspect]
     Indication: NON-SMALL CELL LUNG CANCER
     Dosage: 75.00 MG/M2, INTRAVENOUS
     Route: 042
     Dates: start: 20060830, end: 20060830

REACTIONS (2)
  - NEUTROPHIL COUNT DECREASED [None]
  - WHITE BLOOD CELL COUNT DECREASED [None]
